FAERS Safety Report 6987846-0 (Version None)
Quarter: 2010Q3

REPORT INFORMATION
  Report Type: 
  Country: None (occurrence: None)
  Receive Date: 20100916
  Receipt Date: 20100907
  Transmission Date: 20110219
  Serious: Yes (Hospitalization)
  Sender: FDA-Public Use
  Company Number: US-ASTRAZENECA-2010SE41995

PATIENT
  Sex: Male

DRUGS (3)
  1. NEXIUM [Suspect]
     Indication: IMPAIRED GASTRIC EMPTYING
     Route: 048
     Dates: start: 20100501
  2. NEXIUM [Suspect]
     Indication: GASTRIC DISORDER
     Route: 048
     Dates: start: 20100501
  3. PRILOSEC OTC [Suspect]
     Route: 048

REACTIONS (3)
  - DRUG DOSE OMISSION [None]
  - DRUG INEFFECTIVE [None]
  - ILL-DEFINED DISORDER [None]
